FAERS Safety Report 12848439 (Version 1)
Quarter: 2016Q4

REPORT INFORMATION
  Report Type: Spontaneous
  Country: GB (occurrence: GB)
  Receive Date: 20161014
  Receipt Date: 20161014
  Transmission Date: 20170207
  Serious: Yes (Other)
  Sender: FDA-Public Use
  Company Number: GB-JNJFOC-20161008972

PATIENT
  Age: 59 Year
  Sex: Male
  Weight: 90 kg

DRUGS (6)
  1. WHITE SOFT PARAFFIN [Concomitant]
     Dosage: AS NECESSARY
     Route: 065
     Dates: start: 20150918
  2. BENDROFLUMETHIAZIDE [Concomitant]
     Active Substance: BENDROFLUMETHIAZIDE
     Indication: HYPERTENSION
     Dosage: NO. OF SEPARATE DOSAGES: 1??EACH MORNING
     Route: 065
     Dates: start: 20160506
  3. USTEKINUMAB [Suspect]
     Active Substance: USTEKINUMAB
     Indication: PRODUCT USED FOR UNKNOWN INDICATION
     Route: 058
     Dates: start: 20160930
  4. AMLODIPINE [Concomitant]
     Active Substance: AMLODIPINE BESYLATE
     Indication: CARDIAC DISORDER
     Route: 065
     Dates: start: 20160208
  5. LOSARTAN. [Concomitant]
     Active Substance: LOSARTAN
     Dosage: NO. OF SEPARATE DOSAGES: 1
     Route: 065
     Dates: start: 20160930
  6. CALCIPOTRIOL [Concomitant]
     Active Substance: CALCIPOTRIENE
     Dosage: NO. OF SEPARATE DOSAGES: 2
     Route: 061
     Dates: start: 20150918

REACTIONS (1)
  - Hypertension [Not Recovered/Not Resolved]

NARRATIVE: CASE EVENT DATE: 20160930
